FAERS Safety Report 21570931 (Version 2)
Quarter: 2022Q4

REPORT INFORMATION
  Report Type: Spontaneous
  Country: CN (occurrence: CN)
  Receive Date: 20221109
  Receipt Date: 20221121
  Transmission Date: 20230113
  Serious: Yes (Hospitalization)
  Sender: FDA-Public Use
  Company Number: CN-002147023-NVSC2022CN249067

PATIENT
  Age: 55 Year
  Sex: Female

DRUGS (5)
  1. ACLASTA [Suspect]
     Active Substance: ZOLEDRONIC ACID
     Indication: Osteoporosis
     Dosage: 5 MG, ONCE/SINGLE
     Route: 041
     Dates: start: 20221012, end: 20221012
  2. ACLASTA [Suspect]
     Active Substance: ZOLEDRONIC ACID
     Indication: Hyperlipidaemia
  3. ACLASTA [Suspect]
     Active Substance: ZOLEDRONIC ACID
     Indication: Hepatic cyst
  4. ACLASTA [Suspect]
     Active Substance: ZOLEDRONIC ACID
     Indication: Vitamin D deficiency
  5. ACLASTA [Suspect]
     Active Substance: ZOLEDRONIC ACID
     Indication: Primary hyperthyroidism

REACTIONS (6)
  - Pyrexia [Recovered/Resolved]
  - Temperature intolerance [Recovered/Resolved]
  - Tremor [Recovered/Resolved]
  - Chills [Recovered/Resolved]
  - Discomfort [Recovered/Resolved]
  - Product use in unapproved indication [Unknown]

NARRATIVE: CASE EVENT DATE: 20221013
